FAERS Safety Report 8525985 (Version 2)
Quarter: 2012Q4

REPORT INFORMATION
  Report Type: 
  Country: BR (occurrence: BR)
  Receive Date: 20120423
  Receipt Date: 20121025
  Transmission Date: 20130627
  Serious: Yes (Hospitalization)
  Sender: FDA-Public Use
  Company Number: BR-ASTRAZENECA-2012SE24355

PATIENT
  Sex: Male

DRUGS (4)
  1. BRILINTA [Suspect]
     Route: 048
     Dates: start: 20120206, end: 20120402
  2. PROPRANOLOL [Suspect]
     Route: 065
  3. ASA [Concomitant]
  4. SIMVASTATIN [Concomitant]

REACTIONS (4)
  - Vascular stenosis [Recovered/Resolved]
  - Lung disorder [Unknown]
  - Dyspnoea [Unknown]
  - Abdominal pain [Unknown]
